FAERS Safety Report 8608484 (Version 2)
Quarter: 2012Q4

REPORT INFORMATION
  Report Type: 
  Country: CA (occurrence: CA)
  Receive Date: 20120611
  Receipt Date: 20121008
  Transmission Date: 20130627
  Serious: Yes (Other)
  Sender: FDA-Public Use
  Company Number: CA-JNJFOC-20120602277

PATIENT
  Age: 63 Year
  Sex: Female
  Weight: 69.4 kg

DRUGS (3)
  1. TYLENOL ARTHRITIS PAIN EXTENDED RELIEF [Suspect]
     Route: 048
  2. TYLENOL ARTHRITIS PAIN EXTENDED RELIEF [Suspect]
     Indication: ARTHRITIS
     Dosage: 2x, 4x, 6x a day
     Route: 048
     Dates: start: 2012, end: 20120602
  3. ANTIHYPERTENSIVES [Concomitant]
     Indication: PRODUCT USED FOR UNKNOWN INDICATION
     Route: 065

REACTIONS (1)
  - Hypotension [Recovered/Resolved]
